FAERS Safety Report 23802201 (Version 2)
Quarter: 2024Q2

REPORT INFORMATION
  Report Type: Report from Study
  Country: US (occurrence: US)
  Receive Date: 20240501
  Receipt Date: 20240607
  Transmission Date: 20240715
  Serious: Yes (Other)
  Sender: FDA-Public Use
  Company Number: US-ABBVIE-5284387

PATIENT
  Sex: Female
  Weight: 68 kg

DRUGS (4)
  1. RINVOQ [Suspect]
     Active Substance: UPADACITINIB
     Indication: Rheumatoid arthritis
     Dosage: FORM STRENGTH WAS 15 MILLIGRAMS
     Route: 048
     Dates: start: 20200422
  2. RINVOQ [Suspect]
     Active Substance: UPADACITINIB
     Indication: Rheumatoid arthritis
     Dosage: FORM STRENGTH: 15 MILLIGRAMS
     Route: 048
  3. ATORVASTATIN [Concomitant]
     Active Substance: ATORVASTATIN
     Indication: Product used for unknown indication
     Route: 065
  4. METOPROLOL [Concomitant]
     Active Substance: METOPROLOL
     Indication: Product used for unknown indication
     Route: 065

REACTIONS (15)
  - Cardiac pacemaker insertion [Unknown]
  - Joint noise [Unknown]
  - Arthralgia [Not Recovered/Not Resolved]
  - Scratch [Recovered/Resolved]
  - Fungal infection [Recovered/Resolved]
  - Acrochordon [Recovered/Resolved]
  - Joint noise [Recovered/Resolved]
  - Musculoskeletal stiffness [Recovering/Resolving]
  - Acrochordon [Not Recovered/Not Resolved]
  - Skin papilloma [Not Recovered/Not Resolved]
  - Eye disorder [Not Recovered/Not Resolved]
  - Wound infection [Not Recovered/Not Resolved]
  - Skin cancer [Unknown]
  - Joint noise [Unknown]
  - Neck pain [Recovering/Resolving]

NARRATIVE: CASE EVENT DATE: 20210101
